FAERS Safety Report 4588544-3 (Version None)
Quarter: 2005Q1

REPORT INFORMATION
  Report Type: 
  Country: None (occurrence: None)
  Receive Date: 20050216
  Receipt Date: 20050216
  Transmission Date: 20050727
  Serious: Yes (Other)
  Sender: FDA-Public Use
  Company Number: None

PATIENT
  Age: 34 Year
  Sex: Male
  Weight: 95.2554 kg

DRUGS (2)
  1. WELLBUTRIN [Suspect]
     Indication: SMOKING CESSATION THERAPY
     Dosage: DAILY    ORAL
     Route: 048
     Dates: start: 20000401, end: 20000415
  2. ZOLOFT [Suspect]
     Dosage: DAILY   ORAL
     Route: 048
     Dates: start: 20000501, end: 20000615

REACTIONS (6)
  - CONFUSIONAL STATE [None]
  - DRUG INEFFECTIVE [None]
  - EMOTIONAL DISORDER [None]
  - FEELING ABNORMAL [None]
  - FLAT AFFECT [None]
  - NERVOUS SYSTEM DISORDER [None]
